FAERS Safety Report 10608354 (Version 2)
Quarter: 2015Q2

REPORT INFORMATION
  Report Type: Spontaneous
  Country: US (occurrence: US)
  Receive Date: 20141125
  Receipt Date: 20150515
  Transmission Date: 20150821
  Serious: Yes (Death, Hospitalization, Other)
  Sender: FDA-Public Use
  Company Number: US-BAUSCH-BL-2014-008851

PATIENT
  Age: 7 Year
  Sex: Male

DRUGS (3)
  1. XENAZINE [Suspect]
     Active Substance: TETRABENAZINE
     Indication: DYSKINESIA
     Route: 048
     Dates: start: 20140120
  2. XENAZINE [Suspect]
     Active Substance: TETRABENAZINE
     Indication: SEIZURE
  3. XENAZINE [Suspect]
     Active Substance: TETRABENAZINE
     Indication: MYOCLONUS

REACTIONS (3)
  - Hospitalisation [Unknown]
  - Death [Fatal]
  - Off label use [Not Recovered/Not Resolved]

NARRATIVE: CASE EVENT DATE: 201401
